FAERS Safety Report 11847430 (Version 2)
Quarter: 2015Q4

REPORT INFORMATION
  Report Type: Spontaneous
  Country: CN (occurrence: CN)
  Receive Date: 20151217
  Receipt Date: 20151223
  Transmission Date: 20160305
  Serious: Yes (Hospitalization)
  Sender: FDA-Public Use
  Company Number: PHHY2015CN163152

PATIENT

DRUGS (20)
  1. GABAPENTIN. [Concomitant]
     Active Substance: GABAPENTIN
     Indication: PAIN
     Dosage: 0.3 G, TID
     Route: 065
  2. MORPHINE [Suspect]
     Active Substance: MORPHINE
     Dosage: 40 MG, UNK
     Route: 048
  3. TRAMADOL. [Suspect]
     Active Substance: TRAMADOL
     Indication: RADICULOPATHY
     Dosage: 100 MG, BID
     Route: 065
  4. CARBAMAZEPINE. [Suspect]
     Active Substance: CARBAMAZEPINE
     Indication: RADICULOPATHY
     Dosage: 0.2 G, BID
     Route: 065
  5. OXYCODONE, PARACETAMOL [Suspect]
     Active Substance: ACETAMINOPHEN\OXYCODONE HYDROCHLORIDE
     Indication: PAIN
  6. FENTANYL. [Suspect]
     Active Substance: FENTANYL
     Dosage: 150 UG, QH
     Route: 062
  7. CARBAMAZEPINE. [Suspect]
     Active Substance: CARBAMAZEPINE
     Indication: PAIN
     Dosage: 0.2 G, BID
     Route: 065
  8. MOSAPRIDE CITRATE [Suspect]
     Active Substance: MOSAPRIDE CITRATE
     Indication: PRODUCT USED FOR UNKNOWN INDICATION
     Route: 065
  9. TRAMADOL. [Suspect]
     Active Substance: TRAMADOL
     Indication: PAIN
  10. OXYCODONE, PARACETAMOL [Suspect]
     Active Substance: ACETAMINOPHEN\OXYCODONE HYDROCHLORIDE
     Indication: RADICULOPATHY
     Route: 065
  11. PREGABALIN. [Suspect]
     Active Substance: PREGABALIN
     Indication: RADICULOPATHY
     Route: 065
  12. MORPHINE [Suspect]
     Active Substance: MORPHINE
     Indication: RADICULOPATHY
     Dosage: 10 MG, QID
     Route: 033
  13. MORPHINE [Suspect]
     Active Substance: MORPHINE
     Dosage: 30 MG, Q12H, (AS NEEDED)
     Route: 048
  14. FENTANYL. [Suspect]
     Active Substance: FENTANYL
     Indication: PAIN
     Dosage: 100 UG, QH
     Route: 062
  15. DULOXETINE. [Concomitant]
     Active Substance: DULOXETINE
     Indication: PAIN
     Dosage: 120 MG, QD, (EACH NIGHT)
     Route: 065
  16. MORPHINE [Suspect]
     Active Substance: MORPHINE
     Indication: PAIN
     Dosage: 20 MG, Q4H
     Route: 048
  17. FAMOTIDINE. [Suspect]
     Active Substance: FAMOTIDINE
     Indication: PRODUCT USED FOR UNKNOWN INDICATION
     Route: 065
  18. MORPHINE [Suspect]
     Active Substance: MORPHINE
     Dosage: 30 MG, UNK
     Route: 048
  19. MORPHINE [Suspect]
     Active Substance: MORPHINE
     Dosage: 10 MG, (EVERY 1 - 2 HOURS)
     Route: 033
  20. PREGABALIN. [Suspect]
     Active Substance: PREGABALIN
     Indication: PAIN

REACTIONS (4)
  - Therapeutic response decreased [Unknown]
  - Hepatic function abnormal [Recovering/Resolving]
  - Pain [Recovered/Resolved]
  - Hyperaesthesia [Recovered/Resolved]

NARRATIVE: CASE EVENT DATE: 20150110
